FAERS Safety Report 12803832 (Version 1)
Quarter: 2016Q4

REPORT INFORMATION
  Report Type: Spontaneous
  Country: None (occurrence: US)
  Receive Date: 20161003
  Receipt Date: 20161003
  Transmission Date: 20170207
  Serious: No
  Sender: FDA-Public Use
  Company Number: US-MATRIXX INITIATIVES, INC.-1057934

PATIENT
  Age: 46 Year
  Sex: Female

DRUGS (3)
  1. FLUTICASONE [Concomitant]
     Active Substance: FLUTICASONE\FLUTICASONE PROPIONATE
  2. ZICAM EXTREME CONGESTION RELIEF (OXYMETAZOLINE HYDROCHLORIDE) [Suspect]
     Active Substance: OXYMETAZOLINE HYDROCHLORIDE
     Route: 045
  3. SINGULAIR [Concomitant]
     Active Substance: MONTELUKAST SODIUM

REACTIONS (2)
  - Dysgeusia [None]
  - Anosmia [None]
